FAERS Safety Report 23786622 (Version 1)
Quarter: 2024Q2

REPORT INFORMATION
  Report Type: Spontaneous
  Country: ES (occurrence: ES)
  Receive Date: 20240426
  Receipt Date: 20240426
  Transmission Date: 20240716
  Serious: Yes (Hospitalization)
  Sender: FDA-Public Use
  Company Number: None

PATIENT
  Age: 90 Year
  Sex: Female

DRUGS (11)
  1. AZITHROMYCIN [Suspect]
     Active Substance: AZITHROMYCIN
     Indication: Bronchitis
     Dosage: AZITROMICINA (7019A)
     Route: 048
     Dates: start: 20230729, end: 20230731
  2. ALBUTEROL SULFATE [Concomitant]
     Active Substance: ALBUTEROL SULFATE
     Indication: Bronchitis
     Dosage: 100 MICROGRAMS/DOSE SUSPENSION FOR INHALATION IN PRESSURE CONTAINER, 1 INHALER OF 200 DOSES
     Route: 055
     Dates: start: 20201127
  3. CITALOPRAM CINFA [Concomitant]
     Indication: Depression
     Dosage: EFG 56 TABLETS, 20.0 MG Q/24 H NOC
     Route: 048
     Dates: start: 20110713
  4. ATROALDO [Concomitant]
     Indication: Bronchitis
     Dosage: 20 MICROGRAMS/PULSATION SOLUTION FOR INHALATION IN PRESSURE CONTAINER, 1 INHALER OF 200 DOSES
     Route: 055
     Dates: start: 20201126
  5. CEFUROXIME [Suspect]
     Active Substance: CEFUROXIME
     Indication: Bronchitis
     Dosage: CEFUROXIMA (828A)
     Route: 048
     Dates: start: 20230906, end: 20230912
  6. ASPIRIN [Concomitant]
     Active Substance: ASPIRIN
     Indication: Senile dementia
     Dosage: 30 TABLETS (PVC-ALUMINUM) 100.0 MG DE
     Route: 048
     Dates: start: 20181018
  7. OMEPRAZOLE CINFA [Concomitant]
     Indication: Dyspepsia
     Dosage: 28 CAPSULES (PVC-PVDC-ALUMINUM BLISTER) 40.0 MG A-DE
     Route: 048
     Dates: start: 20100914
  8. VALSARTAN [Concomitant]
     Active Substance: VALSARTAN
     Indication: Hypertension
     Dosage: 80.0 MG A-DE
     Route: 048
     Dates: start: 20220607
  9. DONEPEZIL CINFA [Concomitant]
     Indication: Senile dementia
     Dosage: EFG TABLETS, 28 TABLETS 10.0 MG Q/24 H NOC
     Route: 048
     Dates: start: 20200217
  10. TORASEMIDE NORMON [Concomitant]
     Indication: Hypertension
     Dosage: 2.5 MG OF EFG TABLETS, 30 TABLETS
     Route: 048
     Dates: start: 20220609
  11. CALCIUM CARBONATE\CHOLECALCIFEROL [Concomitant]
     Active Substance: CALCIUM CARBONATE\CHOLECALCIFEROL
     Indication: Product used for unknown indication
     Dosage: 500 MG/400 IU, 30 TABLETS 1.0 COMP EVERY 30 DAYS
     Route: 048
     Dates: start: 20230919

REACTIONS (1)
  - Jaundice [Recovered/Resolved]

NARRATIVE: CASE EVENT DATE: 20230929
